FAERS Safety Report 4600232-3 (Version None)
Quarter: 2005Q1

REPORT INFORMATION
  Report Type: 
  Country: None (occurrence: None)
  Receive Date: 20050307
  Receipt Date: 20050228
  Transmission Date: 20050727
  Serious: Yes (Hospitalization)
  Sender: FDA-Public Use
  Company Number: US-AMGEN-US108930

PATIENT
  Sex: Female

DRUGS (1)
  1. ARANESP [Suspect]
     Indication: ANAEMIA
     Dates: start: 20040101

REACTIONS (6)
  - DECUBITUS ULCER [None]
  - HAEMOGLOBIN DECREASED [None]
  - INFECTED SKIN ULCER [None]
  - INFECTION [None]
  - LEUKOCYTOSIS [None]
  - POST PROCEDURAL COMPLICATION [None]
